FAERS Safety Report 16639142 (Version 2)
Quarter: 2019Q3

REPORT INFORMATION
  Report Type: Spontaneous
  Country: CN (occurrence: CN)
  Receive Date: 20190726
  Receipt Date: 20190806
  Transmission Date: 20191004
  Serious: No
  Sender: FDA-Public Use
  Company Number: CN-009507513-1907CHN012783

PATIENT
  Age: 78 Year
  Sex: Male
  Weight: 65 kg

DRUGS (3)
  1. TIENAM [Suspect]
     Active Substance: CILASTATIN SODIUM\IMIPENEM
     Indication: LUNG INFECTION
     Dosage: 0.5 GRAM, Q6H, WITH MICROPUMP PUMPING
     Dates: start: 20190712, end: 20190714
  2. CIPROBAY (CIPROFLOXACIN HYDROCHLORIDE) [Suspect]
     Active Substance: CIPROFLOXACIN HYDROCHLORIDE
     Indication: LUNG INFECTION
     Dosage: 400 MILLIGRAM, QD
     Dates: start: 20190710, end: 20190714
  3. CEFTAZIDIME. [Concomitant]
     Active Substance: CEFTAZIDIME
     Indication: ANTI-INFECTIVE THERAPY
     Dosage: 1 GRAM, QD
     Dates: start: 20190710, end: 20190712

REACTIONS (5)
  - Breath holding [Recovering/Resolving]
  - Tic [Recovering/Resolving]
  - Screaming [Recovering/Resolving]
  - Somnolence [Not Recovered/Not Resolved]
  - Dysphoria [Recovering/Resolving]

NARRATIVE: CASE EVENT DATE: 20190712
